FAERS Safety Report 11916662 (Version 1)
Quarter: 2016Q1

REPORT INFORMATION
  Report Type: Spontaneous
  Country: US (occurrence: None)
  Receive Date: 20160113
  Receipt Date: 20160113
  Transmission Date: 20160526
  Serious: Yes (Life-Threatening, Hospitalization, Disabling)
  Sender: FDA-Public Use
  Company Number: None

PATIENT
  Age: 74 Year
  Sex: Female
  Weight: 76.2 kg

DRUGS (1)
  1. PROLIA [Suspect]
     Active Substance: DENOSUMAB

REACTIONS (11)
  - Cardiac failure congestive [None]
  - Back pain [None]
  - Pain [None]
  - Endocarditis [None]
  - Influenza like illness [None]
  - Sepsis [None]
  - Bile duct stone [None]
  - Asthenia [None]
  - Meningitis bacterial [None]
  - Death of relative [None]
  - Fatigue [None]

NARRATIVE: CASE EVENT DATE: 20140620
